FAERS Safety Report 6202611-X (Version None)
Quarter: 2009Q2

REPORT INFORMATION
  Report Type: 
  Country: None (occurrence: None)
  Receive Date: 20090521
  Receipt Date: 20090521
  Transmission Date: 20091009
  Serious: Yes (Other)
  Sender: FDA-Public Use
  Company Number: None

PATIENT
  Age: 38 Year
  Sex: Male
  Weight: 74.8435 kg

DRUGS (1)
  1. PROAIR HFA [Suspect]
     Dosage: 100MG

REACTIONS (2)
  - DRUG HYPERSENSITIVITY [None]
  - WHEEZING [None]
